FAERS Safety Report 9411623 (Version 1)
Quarter: 2013Q3

REPORT INFORMATION
  Report Type: Spontaneous
  Country: US (occurrence: None)
  Receive Date: 20130718
  Receipt Date: 20130718
  Transmission Date: 20140515
  Serious: Yes (Other)
  Sender: FDA-Public Use
  Company Number: None

PATIENT
  Sex: Female

DRUGS (3)
  1. NEUTRASAL [Suspect]
     Indication: DRY MOUTH
     Route: 048
     Dates: start: 20130619, end: 20130709
  2. FOLIC ACID [Concomitant]
  3. CALCIUM [Concomitant]

REACTIONS (1)
  - Oral pain [None]
